FAERS Safety Report 4352888-0 (Version None)
Quarter: 2004Q2

REPORT INFORMATION
  Report Type: 
  Country: None (occurrence: None)
  Receive Date: 20040430
  Receipt Date: 20040220
  Transmission Date: 20050107
  Serious: No
  Sender: FDA-Public Use
  Company Number: 204836

PATIENT
  Sex: Male

DRUGS (3)
  1. XOLAIR [Suspect]
     Indication: ASTHMA
     Dosage: 225 MG, Q2W, SUBCUTANEOUS
     Route: 058
     Dates: start: 20031211, end: 20040226
  2. IMMUNOTHERAPY (UNKNOWN ANTIGEN) (ALLERGENIC EXTRACTS) [Concomitant]
  3. ASTHMA MEDICATION (ANTIASTHMATIC DRUG NOS) [Concomitant]

REACTIONS (3)
  - DYSPNOEA [None]
  - HYPERSENSITIVITY [None]
  - RASH PAPULAR [None]
